FAERS Safety Report 4764786-9 (Version None)
Quarter: 2005Q3

REPORT INFORMATION
  Report Type: 
  Country: None (occurrence: None)
  Receive Date: 20050907
  Receipt Date: 20050825
  Transmission Date: 20060218
  Serious: Yes (Death)
  Sender: FDA-Public Use
  Company Number: 2005113460

PATIENT
  Age: 45 Year
  Sex: Female

DRUGS (2)
  1. VFEND [Suspect]
     Indication: INFECTION
     Dosage: 4 MG/KG BID, INTRAVENOUS; 2 MG/KG BID, INTRAVENOUS
     Route: 042
     Dates: end: 20050801
  2. VFEND [Suspect]
     Indication: INFECTION
     Dosage: 4 MG/KG BID, INTRAVENOUS; 2 MG/KG BID, INTRAVENOUS
     Route: 042
     Dates: start: 20050726

REACTIONS (2)
  - BLOOD BILIRUBIN INCREASED [None]
  - MULTI-ORGAN FAILURE [None]
